FAERS Safety Report 24408139 (Version 1)
Quarter: 2024Q4

REPORT INFORMATION
  Report Type: Spontaneous
  Country: US (occurrence: US)
  Receive Date: 20241007
  Receipt Date: 20241007
  Transmission Date: 20250115
  Serious: No
  Sender: PFIZER
  Company Number: US-PFIZER INC-202400270063

PATIENT
  Age: 74 Year
  Sex: Female
  Weight: 58.97 kg

DRUGS (1)
  1. HYDROCORTISONE ACETATE [Suspect]
     Active Substance: HYDROCORTISONE ACETATE
     Dosage: UNK
     Dates: start: 20241002

REACTIONS (4)
  - Drug hypersensitivity [Unknown]
  - Condition aggravated [Unknown]
  - Epistaxis [Unknown]
  - Rhinorrhoea [Unknown]

NARRATIVE: CASE EVENT DATE: 20241003
